FAERS Safety Report 6638135-5 (Version None)
Quarter: 2010Q1

REPORT INFORMATION
  Report Type: 
  Country: None (occurrence: None)
  Receive Date: 20100315
  Receipt Date: 20100315
  Transmission Date: 20100710
  Serious: Yes (Other)
  Sender: FDA-Public Use
  Company Number: None

PATIENT
  Age: 28 Year
  Sex: Female
  Weight: 86.8 kg

DRUGS (1)
  1. TRIAZOLAM [Suspect]
     Indication: INSOMNIA
     Dosage: 0.25MG AT BEDTIME ORAL
     Route: 048
     Dates: start: 20100311

REACTIONS (1)
  - URTICARIA [None]
